FAERS Safety Report 7595212-2 (Version None)
Quarter: 2011Q3

REPORT INFORMATION
  Report Type: 
  Country: None (occurrence: None)
  Receive Date: 20110707
  Receipt Date: 20110630
  Transmission Date: 20111222
  Serious: Yes (Death, Hospitalization)
  Sender: FDA-Public Use
  Company Number: GB-JNJFOC-20110501328

PATIENT
  Sex: Female
  Weight: 100 kg

DRUGS (12)
  1. NORTRIPTYLINE HCL [Concomitant]
     Indication: PRURITUS
     Route: 048
  2. MEBEVERINE [Concomitant]
     Route: 065
  3. BETAHISTINE [Concomitant]
     Route: 065
  4. ORAMORPH SR [Concomitant]
     Route: 065
  5. NORTRIPTYLINE HCL [Concomitant]
     Indication: PAIN
     Route: 048
  6. TRAMEDO [Concomitant]
     Route: 065
  7. STELARA [Suspect]
     Indication: PSORIASIS
     Dosage: TOTAL OF SIX DOSES.
     Route: 058
     Dates: start: 20100225
  8. OMEPRAZOLE [Concomitant]
     Route: 065
  9. FOLIC ACID [Concomitant]
     Route: 065
  10. ACETAMINOPHEN [Concomitant]
     Route: 065
  11. FERROUS SULFATE TAB [Concomitant]
     Route: 065
  12. CETIRIZINE HCL [Concomitant]
     Indication: PRURITUS
     Route: 065

REACTIONS (5)
  - MULTI-ORGAN FAILURE [None]
  - URINARY TRACT INFECTION [None]
  - LOWER RESPIRATORY TRACT INFECTION [None]
  - CARDIAC FAILURE CONGESTIVE [None]
  - PULMONARY OEDEMA [None]
